FAERS Safety Report 11917220 (Version 5)
Quarter: 2020Q1

REPORT INFORMATION
  Report Type: Spontaneous
  Country: US (occurrence: US)
  Receive Date: 20160114
  Receipt Date: 20200325
  Transmission Date: 20200409
  Serious: Yes (Other)
  Sender: FDA-Public Use
  Company Number: US-PFIZER INC-2016008542

PATIENT
  Age: 78 Year
  Sex: Female
  Weight: 59 kg

DRUGS (3)
  1. RAPAMUNE [Suspect]
     Active Substance: SIROLIMUS
     Indication: PROPHYLAXIS AGAINST TRANSPLANT REJECTION
     Dosage: 1 MG, 1X/DAY (MORNING)
     Route: 048
     Dates: start: 2016
  2. METOPROLOL. [Concomitant]
     Active Substance: METOPROLOL
     Indication: BLOOD PRESSURE ABNORMAL
     Dosage: 50 MG, 2X/DAY
     Route: 048
  3. SYNTHROID [Concomitant]
     Active Substance: LEVOTHYROXINE SODIUM
     Indication: THYROID DISORDER
     Dosage: 75 MG, 1X/DAY
     Route: 048
     Dates: start: 2006

REACTIONS (43)
  - Encephalitis [Unknown]
  - Malaise [Unknown]
  - Heart rate irregular [Unknown]
  - Contusion [Unknown]
  - Platelet count decreased [Not Recovered/Not Resolved]
  - Urinary tract infection [Unknown]
  - Pain [Unknown]
  - Hypertension [Unknown]
  - Chest pain [Unknown]
  - Arthralgia [Unknown]
  - Myalgia [Unknown]
  - Bone pain [Unknown]
  - Mood altered [Unknown]
  - Blood calcium increased [Unknown]
  - Drug intolerance [Unknown]
  - Tremor [Unknown]
  - Muscle spasms [Unknown]
  - Rash [Unknown]
  - Splenomegaly [Unknown]
  - Insomnia [Unknown]
  - Hyperglycaemia [Unknown]
  - Product use in unapproved indication [Unknown]
  - Hunger [Unknown]
  - Throat irritation [Not Recovered/Not Resolved]
  - Dizziness [Not Recovered/Not Resolved]
  - Pain in extremity [Unknown]
  - Blood cholesterol increased [Unknown]
  - Headache [Not Recovered/Not Resolved]
  - Confusional state [Unknown]
  - Night sweats [Unknown]
  - Pollakiuria [Unknown]
  - Peripheral swelling [Unknown]
  - Disturbance in attention [Unknown]
  - Swelling face [Unknown]
  - Blood triglycerides increased [Unknown]
  - Oropharyngeal pain [Unknown]
  - Lymphoma [Unknown]
  - Deafness [Unknown]
  - Off label use [Unknown]
  - Mental status changes [Unknown]
  - Urine analysis abnormal [Unknown]
  - Pruritus [Unknown]
  - Pharyngeal swelling [Unknown]
